FAERS Safety Report 10202506 (Version 1)
Quarter: 2014Q2

REPORT INFORMATION
  Report Type: Spontaneous
  Country: BR (occurrence: BR)
  Receive Date: 20140528
  Receipt Date: 20140528
  Transmission Date: 20141212
  Serious: Yes (Hospitalization)
  Sender: FDA-Public Use
  Company Number: BR-MERCK-1405BRA013649

PATIENT
  Sex: Male
  Weight: 21 kg

DRUGS (3)
  1. NASONEX [Suspect]
     Indication: RHINITIS ALLERGIC
     Dosage: UNK UNK, PRN
     Route: 045
     Dates: start: 200808
  2. DESALEX [Suspect]
     Indication: RHINITIS ALLERGIC
     Dosage: 5 ML, QD
     Dates: start: 200808
  3. AVAMYS [Concomitant]
     Indication: RHINITIS ALLERGIC
     Dosage: 2 PUFF EACH NOSTRIL, QD
     Route: 045
     Dates: start: 20140427

REACTIONS (3)
  - Hernia repair [Recovered/Resolved]
  - Circumcision [Recovered/Resolved]
  - Pain [Recovered/Resolved]
